FAERS Safety Report 25903921 (Version 1)
Quarter: 2025Q4

REPORT INFORMATION
  Report Type: Spontaneous
  Country: JP (occurrence: JP)
  Receive Date: 20251010
  Receipt Date: 20251010
  Transmission Date: 20260118
  Serious: Yes (Other)
  Sender: RECORDATI
  Company Number: JP-ORPHANEU-2025007105

PATIENT
  Age: 54 Year
  Sex: Female

DRUGS (3)
  1. ENJAYMO [Suspect]
     Active Substance: SUTIMLIMAB-JOME
     Indication: Cold type haemolytic anaemia
  2. PREDNISOLONE [Concomitant]
     Active Substance: PREDNISOLONE
     Indication: Cold type haemolytic anaemia
     Dosage: 1MG/KG
  3. PREDNISOLONE [Concomitant]
     Active Substance: PREDNISOLONE
     Dosage: DOSE WAS TAPERED

REACTIONS (2)
  - Haemolysis [Recovered/Resolved]
  - Diffuse large B-cell lymphoma [Unknown]
